FAERS Safety Report 20633308 (Version 1)
Quarter: 2022Q1

REPORT INFORMATION
  Report Type: Spontaneous
  Country: CN (occurrence: CN)
  Receive Date: 20220324
  Receipt Date: 20220324
  Transmission Date: 20220424
  Serious: Yes (Hospitalization, Other)
  Sender: FDA-Public Use
  Company Number: CN-009507513-2203CHN006528

PATIENT
  Age: 72 Year
  Sex: Male
  Weight: 55 kg

DRUGS (19)
  1. INVANZ [Suspect]
     Active Substance: ERTAPENEM SODIUM
     Indication: Anti-infective therapy
     Dosage: 0.5 GRAM, QD
     Route: 041
     Dates: start: 20220216, end: 20220301
  2. MOXIFLOXACIN HYDROCHLORIDE [Suspect]
     Active Substance: MOXIFLOXACIN HYDROCHLORIDE
     Indication: Anti-infective therapy
     Dosage: 0.4 GRAM, QD
     Route: 048
     Dates: start: 20220211, end: 20220212
  3. GLYCERIN\MEDIUM-CHAIN TRIGLYCERIDES\PHOSPHOLIPID\SOYBEAN OIL [Concomitant]
     Active Substance: GLYCERIN\MEDIUM-CHAIN TRIGLYCERIDES\PHOSPHOLIPID\SOYBEAN OIL
     Indication: Nutritional supplementation
     Dosage: 250 MILLILITER, QD
     Route: 041
     Dates: start: 20220213, end: 20220213
  4. AMINO ACIDS [Concomitant]
     Active Substance: AMINO ACIDS
     Indication: Nutritional supplementation
     Dosage: DOSE: 4 TABLETS
     Route: 048
     Dates: start: 20220211, end: 20220315
  5. AMINO ACIDS, SOURCE UNSPECIFIED [Concomitant]
     Active Substance: AMINO ACIDS, SOURCE UNSPECIFIED
     Indication: Nutritional supplementation
     Dosage: 250 MILLILITER, QD
     Route: 041
     Dates: start: 20220212, end: 20220212
  6. COMPOUND AMINO ACID INJECTION (9AA) [Concomitant]
     Indication: Nutritional supplementation
     Dosage: 250 MILLILITER, QD
     Route: 041
     Dates: start: 20220214, end: 20220214
  7. NIAO DU QING [Concomitant]
     Indication: Prophylaxis
     Dosage: 5 GRAM, QID
     Route: 048
     Dates: start: 20220211, end: 20220308
  8. TEPRENONE [Concomitant]
     Active Substance: TEPRENONE
     Indication: Prophylaxis
     Dosage: 50 MILLIGRAM, TID
     Route: 048
     Dates: start: 20220211, end: 20220308
  9. CEFOPERAZONE SODIUM\SULBACTAM SODIUM [Concomitant]
     Active Substance: CEFOPERAZONE SODIUM\SULBACTAM SODIUM
     Indication: Anti-infective therapy
     Dosage: 1.5 GRAM, TID
     Route: 041
     Dates: start: 20220212, end: 20220216
  10. INSULIN GLARGINE [Concomitant]
     Active Substance: INSULIN GLARGINE
     Indication: Diabetes mellitus
     Dosage: DOSE: 12 U, QD
     Route: 058
     Dates: start: 20220211, end: 20220315
  11. METHYLCOBALAMIN [Concomitant]
     Active Substance: METHYLCOBALAMIN
     Dosage: 0.5 MILLIGRAM, TID; INDICATION: NOURISHING NERVES
     Route: 048
     Dates: start: 20220211, end: 20220315
  12. LERCANIDIPINE HYDROCHLORIDE [Concomitant]
     Active Substance: LERCANIDIPINE HYDROCHLORIDE
     Indication: Hypertension
     Dosage: 10 MILLIGRAM, BID
     Route: 048
     Dates: start: 20220211, end: 20220315
  13. CLOPIDOGREL BISULFATE [Concomitant]
     Active Substance: CLOPIDOGREL BISULFATE
     Dosage: 75 MILLIGRAM, QD; INDICATION: ANTI-PLATELET
     Route: 048
     Dates: start: 20220211, end: 20220315
  14. ROXADUSTAT [Concomitant]
     Active Substance: ROXADUSTAT
     Indication: Anaemia
     Dosage: 100 MILLIGRAM, QOD
     Route: 048
     Dates: start: 20220214, end: 20220307
  15. CITICOLINE SODIUM [Concomitant]
     Active Substance: CITICOLINE SODIUM
     Dosage: 0.2 GRAM, TID; INDICATION: IMPROVE BRAIN CIRCULATION AND METABOLISM
     Route: 048
     Dates: start: 20220211, end: 20220315
  16. PANCREATIN [Concomitant]
     Active Substance: PANCRELIPASE
     Dosage: 0.3 GRAM, TID; INDICATION: PROMOTE DIGESTION
     Route: 048
     Dates: start: 20220211, end: 20220315
  17. ATORVASTATIN CALCIUM [Concomitant]
     Active Substance: ATORVASTATIN CALCIUM
     Dosage: 20 MILLIGRAM, QD; INDICATION: REGULATE BLOOD LIPIDS
     Route: 048
     Dates: start: 20220211, end: 20220315
  18. RABEPRAZOLE SODIUM [Concomitant]
     Active Substance: RABEPRAZOLE SODIUM
     Dosage: 20 MILLIGRAM, QD; INDICATION: ACID PRODUCTION
     Route: 048
     Dates: start: 20220211, end: 20220315
  19. CALCITONIN SALMON [Concomitant]
     Active Substance: CALCITONIN SALMON
     Indication: Hypercalcaemia
     Dosage: DOSE: 300 U, QD
     Route: 042
     Dates: start: 20220211, end: 20220214

REACTIONS (6)
  - Soliloquy [Recovered/Resolved]
  - Abnormal behaviour [Recovered/Resolved]
  - Speech disorder [Recovered/Resolved]
  - Poor quality sleep [Recovered/Resolved]
  - Hallucination [Recovered/Resolved]
  - Patient uncooperative [Recovered/Resolved]

NARRATIVE: CASE EVENT DATE: 20220201
